FAERS Safety Report 10729336 (Version 1)
Quarter: 2015Q1

REPORT INFORMATION
  Report Type: Spontaneous
  Country: US (occurrence: US)
  Receive Date: 20150122
  Receipt Date: 20150122
  Transmission Date: 20150721
  Serious: Yes (Death, Other)
  Sender: FDA-Public Use
  Company Number: US-009507513-1501USA007769

PATIENT
  Sex: Male

DRUGS (1)
  1. JANUVIA [Suspect]
     Active Substance: SITAGLIPTIN PHOSPHATE
     Dosage: UNK
     Route: 048
     Dates: start: 200805, end: 200901

REACTIONS (4)
  - Pancreatic carcinoma [Fatal]
  - Hypertension [Unknown]
  - Diabetes mellitus [Unknown]
  - Metastases to liver [Unknown]

NARRATIVE: CASE EVENT DATE: 20081126
